FAERS Safety Report 23242885 (Version 6)
Quarter: 2024Q1

REPORT INFORMATION
  Report Type: Report from Study
  Country: PT (occurrence: PT)
  Receive Date: 20231129
  Receipt Date: 20240214
  Transmission Date: 20240410
  Serious: Yes (Hospitalization, Other)
  Sender: FDA-Public Use
  Company Number: PT-ABBVIE-5508870

PATIENT
  Age: 67 Year
  Sex: Male

DRUGS (12)
  1. CARBIDOPA\LEVODOPA [Suspect]
     Active Substance: CARBIDOPA\LEVODOPA
     Indication: Parkinson^s disease
     Dosage: 20 MG + 5 MG?MORN:7ML;MAIN:3.2ML/H;EXTRA:1ML
     Route: 050
     Dates: start: 20220511
  2. CARBIDOPA\LEVODOPA [Suspect]
     Active Substance: CARBIDOPA\LEVODOPA
     Dosage: 20 MG + 5 MG?FIRST ADMIN DATE-2023?FREQUENCY TEXT: MORN:10.2CC;MAIN:4.5CC/H;EXTRA:3CC
     Route: 050
     Dates: end: 20231118
  3. CARBIDOPA\LEVODOPA [Suspect]
     Active Substance: CARBIDOPA\LEVODOPA
     Dosage: 20 MG + 5 MG, - FREQUENCY TEXT: MORN:10.2CC;MAIN:4.5CC/H;EXTRA:3CC
     Route: 050
     Dates: start: 20231123, end: 20240205
  4. CARBIDOPA\LEVODOPA [Suspect]
     Active Substance: CARBIDOPA\LEVODOPA
     Dosage: 20 MG + 5 MG, FREQUENCY TEXT: MORN:2CC;MAIN:4.1(DAY)2(NIGHT)CC/H
     Route: 050
     Dates: start: 20240208
  5. CARBIDOPA\LEVODOPA [Suspect]
     Active Substance: CARBIDOPA\LEVODOPA
     Dosage: 20 MG + 5 MG, FREQUENCY TEXT: MORN:2CC;MAIN:3.9(DAY)2(NIGHT)CC/H
     Route: 050
     Dates: start: 20240206, end: 20240208
  6. Folic acid plus vitamin b12 [Concomitant]
     Indication: Product used for unknown indication
     Dosage: 1 TABLET, BEFORE DUODOPA
     Route: 048
  7. AMANTADINE HYDROCHLORIDE [Concomitant]
     Active Substance: AMANTADINE HYDROCHLORIDE
     Indication: Product used for unknown indication
     Dosage: 1 TABLET, STRENGTH 100 MG
     Route: 048
     Dates: start: 2023
  8. MIRTAZAPINE [Concomitant]
     Active Substance: MIRTAZAPINE
     Indication: Product used for unknown indication
     Dosage: STRENGTH 30 MG
     Route: 048
     Dates: start: 2023
  9. RABEPRAZOLE [Concomitant]
     Active Substance: RABEPRAZOLE
     Indication: Product used for unknown indication
     Dosage: 1 TABLET, FORM STRENGTH 20 MILLIGRAM
     Route: 048
     Dates: start: 202303, end: 20231127
  10. RABEPRAZOLE [Concomitant]
     Active Substance: RABEPRAZOLE
     Indication: Product used for unknown indication
     Dosage: 2 TABLET?FORM STRENGTH 20 MILLIGRAM
     Dates: start: 20231127
  11. BENSERAZIDE HYDROCHLORIDE\LEVODOPA [Concomitant]
     Active Substance: BENSERAZIDE HYDROCHLORIDE\LEVODOPA
     Indication: Product used for unknown indication
     Dosage: 2 TABLET, AT BEDTIME, BEFORE DUODOPA
     Route: 065
  12. CLONAZEPAM [Concomitant]
     Active Substance: CLONAZEPAM
     Indication: Product used for unknown indication
     Dosage: 1 TABLET, BEFORE DUODOPA, STRENGTH 0.5 MG
     Route: 048

REACTIONS (14)
  - Faecal volume increased [Recovered/Resolved]
  - Abdominal distension [Recovered/Resolved]
  - Arthralgia [Recovered/Resolved]
  - Abdominal pain [Recovered/Resolved]
  - Bradykinesia [Recovered/Resolved]
  - Myalgia [Recovered/Resolved]
  - Off label use [Not Recovered/Not Resolved]
  - Device dislocation [Recovered/Resolved]
  - Musculoskeletal stiffness [Recovered/Resolved]
  - Mobility decreased [Recovered/Resolved]
  - Haematochezia [Recovered/Resolved]
  - Mucosal erosion [Not Recovered/Not Resolved]
  - Constipation [Recovered/Resolved]
  - Mobility decreased [Recovered/Resolved]

NARRATIVE: CASE EVENT DATE: 20231115
